FAERS Safety Report 24717843 (Version 1)
Quarter: 2024Q4

REPORT INFORMATION
  Report Type: Spontaneous
  Country: CN (occurrence: CN)
  Receive Date: 20241210
  Receipt Date: 20241210
  Transmission Date: 20250115
  Serious: Yes (Other)
  Sender: BAXTER
  Company Number: None

PATIENT
  Age: 29 Year
  Sex: Female
  Weight: 67 kg

DRUGS (6)
  1. CYCLOPHOSPHAMIDE [Suspect]
     Active Substance: CYCLOPHOSPHAMIDE
     Indication: Aplastic anaemia
     Dosage: 2 G, ONE TIME IN ONE DAY, DILUTED WITH 250 ML OF SODIUM CHLORIDE
     Route: 041
     Dates: start: 20240411, end: 20240411
  2. SODIUM CHLORIDE [Suspect]
     Active Substance: SODIUM CHLORIDE
     Indication: Medication dilution
     Dosage: 250 ML, ONE TIME IN ONE DAY, USED TO DILUTE 2 G OF CYCLOPHOSPHAMIDE
     Route: 041
     Dates: start: 20240411, end: 20240411
  3. SODIUM CHLORIDE [Suspect]
     Active Substance: SODIUM CHLORIDE
     Dosage: 50 ML, FOUR TIMES IN ONE DAY, USED TO DILUTE 25 MG OF THYMOGLOBULINE (RABBIT ANTI-HUMAN THYMOCYTE IM
     Route: 050
     Dates: start: 20240411, end: 20240411
  4. SODIUM CHLORIDE [Suspect]
     Active Substance: SODIUM CHLORIDE
     Dosage: 250 ML, ONE TIME IN ONE DAY, USED TO DILUTE 0.8 G OF MESNA
     Route: 041
     Dates: start: 20240411, end: 20240411
  5. THYMOGLOBULINE [Suspect]
     Active Substance: LAPINE T-LYMPHOCYTE IMMUNE GLOBULIN
     Indication: Aplastic anaemia
     Dosage: 25 MG, FOUR TIMES IN ONE DAY, DILUTED WITH 50 ML OF SODIUM CHLORIDE-(MICROPUMP, Q6H, MAINTENANCE 2H)
     Route: 050
     Dates: start: 20240411, end: 20240411
  6. MESNA [Suspect]
     Active Substance: MESNA
     Indication: Aplastic anaemia
     Dosage: 0.8 G, ONE TIME IN ONE DAY, DILUTED WITH 250 ML OF SODIUM CHLORIDE
     Route: 041
     Dates: start: 20240411, end: 20240411

REACTIONS (2)
  - Chest discomfort [Recovering/Resolving]
  - Blood pressure decreased [Recovering/Resolving]

NARRATIVE: CASE EVENT DATE: 20240411
